FAERS Safety Report 8520677-9 (Version None)
Quarter: 2012Q3

REPORT INFORMATION
  Report Type: 
  Country: None (occurrence: None)
  Receive Date: 20120709
  Receipt Date: 20120627
  Transmission Date: 20120928
  Serious: Yes (Other)
  Sender: FDA-Public Use
  Company Number: AUR-APL-2012-02892

PATIENT
  Age: 39 Year
  Sex: Female

DRUGS (8)
  1. TEGRETOL-XR [Concomitant]
  2. CLONAZEPAM [Concomitant]
  3. LAMICTAL [Suspect]
     Indication: CONVULSION
     Dosage: 550 MG (275 MG, 2 IN 1 D), ORAL
     Route: 048
     Dates: start: 20110101
  4. LAMOTRIGINE [Suspect]
     Indication: CONVULSION
     Dosage: ORAL
     Route: 048
  5. DILANTIN [Suspect]
     Indication: CONVULSION
     Dosage: (300 MG)
  6. FLAX SEED (LINUM USITATISSIMUM SEED OIL) [Concomitant]
  7. VITAMIN B COMPLEX (AFI-B-TOTAL /00322001/) [Concomitant]
  8. COCONUT OIL (COCOS NUCIFERA OIL) [Concomitant]

REACTIONS (12)
  - DISSOCIATION [None]
  - NERVOUS SYSTEM DISORDER [None]
  - ANTICONVULSANT DRUG LEVEL DECREASED [None]
  - DYSTONIA [None]
  - ANTICONVULSANT DRUG LEVEL INCREASED [None]
  - COGNITIVE DISORDER [None]
  - DRUG INTERACTION [None]
  - AURA [None]
  - DRUG INEFFECTIVE [None]
  - CONVULSION [None]
  - DRUG LEVEL DECREASED [None]
  - INCOHERENT [None]
